FAERS Safety Report 5451985-6 (Version None)
Quarter: 2007Q3

REPORT INFORMATION
  Report Type: 
  Country: None (occurrence: None)
  Receive Date: 20070912
  Receipt Date: 20070830
  Transmission Date: 20080115
  Serious: Yes (Other)
  Sender: FDA-Public Use
  Company Number: GXKR2007JP07511

PATIENT
  Age: 16 Year
  Sex: Female

DRUGS (1)
  1. SOMATROPIN(NGX)(SOMATROPIN) UNKNOWN [Suspect]
     Indication: BLOOD GROWTH HORMONE DECREASED

REACTIONS (18)
  - BODY TEMPERATURE INCREASED [None]
  - CARDIAC TAMPONADE [None]
  - DECREASED APPETITE [None]
  - DIASTOLIC HYPERTENSION [None]
  - DYSPNOEA [None]
  - ERYTHEMA [None]
  - FATIGUE [None]
  - HAEMATURIA [None]
  - LYMPHADENOPATHY [None]
  - MOUTH ULCERATION [None]
  - PERICARDIAL DRAINAGE [None]
  - PERICARDIAL EFFUSION [None]
  - PLEURAL EFFUSION [None]
  - PROTEINURIA [None]
  - PULSE PRESSURE DECREASED [None]
  - SYSTEMIC LUPUS ERYTHEMATOSUS [None]
  - TACHYCARDIA [None]
  - TACHYPNOEA [None]
